FAERS Safety Report 15154265 (Version 1)
Quarter: 2018Q3

REPORT INFORMATION
  Report Type: Spontaneous
  Country: US (occurrence: US)
  Receive Date: 20180620
  Receipt Date: 20180620
  Transmission Date: 20181010
  Serious: No
  Sender: FDA-Public Use
  Company Number: None

PATIENT
  Age: 31 Year
  Sex: Female
  Weight: 135 kg

DRUGS (5)
  1. SUMATRIPTAN. [Concomitant]
     Active Substance: SUMATRIPTAN
  2. NORA BE [Suspect]
     Active Substance: NORETHINDRONE
     Indication: CONTRACEPTION
     Dosage: ?          QUANTITY:1 TABLET(S);?
     Route: 048
     Dates: start: 20140901, end: 20180208
  3. ADVIL [Concomitant]
     Active Substance: IBUPROFEN
  4. PRENATAL GUMMYS [Concomitant]
  5. NORA BE [Suspect]
     Active Substance: NORETHINDRONE
     Indication: MIGRAINE
     Dosage: ?          QUANTITY:1 TABLET(S);?
     Route: 048
     Dates: start: 20140901, end: 20180208

REACTIONS (11)
  - Anxiety [None]
  - Vomiting [None]
  - Vision blurred [None]
  - Nausea [None]
  - Parosmia [None]
  - Dizziness [None]
  - Crying [None]
  - Mood swings [None]
  - Suicidal ideation [None]
  - Fatigue [None]
  - Abdominal discomfort [None]

NARRATIVE: CASE EVENT DATE: 20180208
